FAERS Safety Report 8184489-0 (Version None)
Quarter: 2012Q1

REPORT INFORMATION
  Report Type: 
  Country: None (occurrence: None)
  Receive Date: 20120305
  Receipt Date: 20120221
  Transmission Date: 20120608
  Serious: Yes (Other)
  Sender: FDA-Public Use
  Company Number: FR-CELGENEUS-056-21880-12022314

PATIENT
  Sex: Female
  Weight: 67 kg

DRUGS (6)
  1. VINCRISTINE [Concomitant]
     Indication: LYMPHOMA
     Route: 065
     Dates: start: 20120206
  2. REVLIMID [Suspect]
     Indication: B-CELL LYMPHOMA
     Dosage: 25 MILLIGRAM
     Route: 048
     Dates: start: 20120206, end: 20120217
  3. CYCLOPHOSPHAMIDE [Concomitant]
     Indication: LYMPHOMA
     Route: 065
     Dates: start: 20120206
  4. PREDNISONE TAB [Concomitant]
     Indication: LYMPHOMA
     Route: 065
     Dates: start: 20120206
  5. RITUXIMAB [Concomitant]
     Indication: LYMPHOMA
     Route: 065
     Dates: start: 20120206
  6. ADRIAMYCIN PFS [Concomitant]
     Indication: LYMPHOMA
     Route: 065
     Dates: start: 20120206

REACTIONS (4)
  - EYE PAIN [None]
  - OCULAR HYPERAEMIA [None]
  - EYE SWELLING [None]
  - RASH ERYTHEMATOUS [None]
